FAERS Safety Report 8567898-7 (Version None)
Quarter: 2012Q3

REPORT INFORMATION
  Report Type: 
  Country: None (occurrence: None)
  Receive Date: 20120803
  Receipt Date: 20120719
  Transmission Date: 20120928
  Serious: Yes (Life-Threatening)
  Sender: FDA-Public Use
  Company Number: GB-PFIZER INC-2012126190

PATIENT
  Age: 20 Year
  Sex: Female

DRUGS (1)
  1. EPIPEN [Suspect]
     Indication: ANAPHYLACTIC SHOCK
     Dosage: UNK
     Dates: start: 20120510

REACTIONS (2)
  - CHEST PAIN [None]
  - DEVICE FAILURE [None]
